FAERS Safety Report 7224400-X (Version None)
Quarter: 2011Q1

REPORT INFORMATION
  Report Type: 
  Country: None (occurrence: None)
  Receive Date: 20110113
  Receipt Date: 20110105
  Transmission Date: 20110831
  Serious: Yes (Life-Threatening)
  Sender: FDA-Public Use
  Company Number: JP-JNJFOC-20101100756

PATIENT
  Age: 57 Year
  Sex: Female
  Weight: 52 kg

DRUGS (30)
  1. METHOTREXATE [Suspect]
     Indication: PSORIATIC ARTHROPATHY
     Route: 048
  2. PYRIDOXAL PHOSPHATE [Concomitant]
     Indication: PROPHYLAXIS
     Route: 048
  3. REMICADE [Suspect]
     Indication: PSORIATIC ARTHROPATHY
     Route: 042
  4. REMICADE [Suspect]
     Route: 042
  5. METHOTREXATE [Suspect]
     Route: 048
  6. METHOTREXATE [Suspect]
     Route: 048
  7. METHOTREXATE [Suspect]
     Route: 048
  8. METHOTREXATE [Suspect]
     Route: 048
  9. METHOTREXATE [Suspect]
     Route: 048
  10. METHOTREXATE [Suspect]
     Route: 048
  11. METHOTREXATE [Suspect]
     Route: 048
  12. NEOISCOTIN [Concomitant]
     Indication: ANTIBIOTIC PROPHYLAXIS
     Route: 048
  13. ATARAX [Concomitant]
     Indication: PSORIATIC ARTHROPATHY
     Route: 048
  14. PARIET [Concomitant]
     Indication: PROPHYLAXIS
     Route: 048
  15. METHOTREXATE [Suspect]
     Route: 048
  16. ALLEGRA [Concomitant]
     Indication: PROPHYLAXIS
     Route: 048
  17. METHOTREXATE [Suspect]
     Route: 048
  18. METHOTREXATE [Suspect]
     Route: 048
  19. DOVONEX [Concomitant]
     Indication: PSORIATIC ARTHROPATHY
  20. CELECOX [Concomitant]
     Indication: PSORIATIC ARTHROPATHY
     Route: 048
  21. FOLIAMIN [Concomitant]
     Indication: PROPHYLAXIS
     Route: 048
  22. METHOTREXATE [Suspect]
     Route: 048
  23. METHOTREXATE [Suspect]
     Route: 048
  24. REMICADE [Suspect]
     Route: 042
  25. METHOTREXATE [Suspect]
     Indication: RHEUMATOID ARTHRITIS
     Route: 048
  26. METHOTREXATE [Suspect]
     Route: 048
  27. METHOTREXATE [Suspect]
     Route: 048
  28. METHOTREXATE [Suspect]
     Route: 048
  29. METHOTREXATE [Suspect]
     Route: 048
  30. CALONAL [Concomitant]
     Indication: PROPHYLAXIS
     Route: 048

REACTIONS (1)
  - PNEUMOCYSTIS JIROVECI PNEUMONIA [None]
